FAERS Safety Report 6409763-7 (Version None)
Quarter: 2009Q4

REPORT INFORMATION
  Report Type: 
  Country: None (occurrence: None)
  Receive Date: 20091022
  Receipt Date: 20091013
  Transmission Date: 20100525
  Serious: Yes (Other)
  Sender: FDA-Public Use
  Company Number: BR-JNJFOC-20091005466

PATIENT
  Sex: Male

DRUGS (4)
  1. TYLEX [Suspect]
     Indication: PAIN IN EXTREMITY
     Route: 065
  2. ENALAPRIL MALEATE [Concomitant]
     Route: 065
  3. METFORMIN [Concomitant]
     Route: 065
  4. AAS [Concomitant]
     Route: 065

REACTIONS (1)
  - DEPRESSION [None]
